FAERS Safety Report 9341261 (Version 4)
Quarter: 2013Q3

REPORT INFORMATION
  Report Type: Spontaneous
  Country: AU (occurrence: AU)
  Receive Date: 20130611
  Receipt Date: 20130731
  Transmission Date: 20140515
  Serious: Yes (Hospitalization, Disabling, Other)
  Sender: FDA-Public Use
  Company Number: AU-AMGEN-AUSSP2013014471

PATIENT
  Age: 83 Year
  Sex: Male

DRUGS (4)
  1. XGEVA [Suspect]
     Indication: METASTASES TO BONE
     Dosage: 120 MG, QMO
     Route: 058
     Dates: start: 20120201, end: 20130624
  2. VITAMIN D                          /00107901/ [Concomitant]
  3. CALCIUM [Concomitant]
  4. CHEMOTHERAPEUTICS [Concomitant]

REACTIONS (14)
  - Impaired healing [Not Recovered/Not Resolved]
  - Oral candidiasis [Recovering/Resolving]
  - Feeling abnormal [Recovering/Resolving]
  - Disease progression [Unknown]
  - Tooth disorder [Not Recovered/Not Resolved]
  - Tooth socket haemorrhage [Not Recovered/Not Resolved]
  - Dysgeusia [Not Recovered/Not Resolved]
  - Malaise [Recovering/Resolving]
  - Asthenia [Recovering/Resolving]
  - Muscular weakness [Recovering/Resolving]
  - Somnolence [Recovering/Resolving]
  - Incoherent [Recovering/Resolving]
  - Decreased appetite [Not Recovered/Not Resolved]
  - Weight decreased [Not Recovered/Not Resolved]
